FAERS Safety Report 9193476 (Version 1)
Quarter: 2013Q1

REPORT INFORMATION
  Report Type: Spontaneous
  Country: US (occurrence: None)
  Receive Date: 20130325
  Receipt Date: 20130325
  Transmission Date: 20140127
  Serious: No
  Sender: FDA-Public Use
  Company Number: None

PATIENT
  Age: 59 Year
  Sex: Female
  Weight: 70.76 kg

DRUGS (3)
  1. ESTRING [Suspect]
     Indication: VULVOVAGINAL PAIN
     Dosage: OVER 3 MONTHS
     Route: 067
     Dates: start: 20121204, end: 20130204
  2. ESTRING [Suspect]
     Indication: VULVOVAGINAL DRYNESS
     Dosage: OVER 3 MONTHS
     Route: 067
     Dates: start: 20121204, end: 20130204
  3. ESTRING [Suspect]
     Indication: POSTMENOPAUSE
     Dosage: OVER 3 MONTHS
     Route: 067
     Dates: start: 20121204, end: 20130204

REACTIONS (1)
  - No adverse event [None]
